FAERS Safety Report 5011641-5 (Version None)
Quarter: 2006Q2

REPORT INFORMATION
  Report Type: 
  Country: None (occurrence: None)
  Receive Date: 20060526
  Receipt Date: 20060518
  Transmission Date: 20061013
  Serious: Yes (Hospitalization)
  Sender: FDA-Public Use
  Company Number: US-JNJFOC-20060504331

PATIENT
  Sex: Male

DRUGS (9)
  1. REMICADE [Suspect]
     Route: 042
  2. LOTREL [Concomitant]
  3. LOTREL [Concomitant]
     Indication: BLOOD PRESSURE
  4. CELEBREX [Concomitant]
     Indication: PAIN
  5. DOXAZOSIN [Concomitant]
     Indication: BLOOD PRESSURE
  6. ZYRTEC-D 12 HOUR [Concomitant]
  7. PREDNISONE TAB [Concomitant]
  8. FOLIC ACID [Concomitant]
  9. B6 [Concomitant]

REACTIONS (3)
  - DEHYDRATION [None]
  - DIARRHOEA [None]
  - WEIGHT DECREASED [None]
